FAERS Safety Report 13009910 (Version 10)
Quarter: 2024Q3

REPORT INFORMATION
  Report Type: Report from Study
  Country: IN (occurrence: IN)
  Receive Date: 20161208
  Receipt Date: 20240812
  Transmission Date: 20241017
  Serious: Yes (Hospitalization, Disabling, Other)
  Sender: NOVARTIS
  Company Number: PHHY2014IN084165

PATIENT
  Age: 34 Year
  Sex: Female

DRUGS (11)
  1. TASIGNA [Suspect]
     Active Substance: NILOTINIB
     Indication: Chronic myeloid leukaemia
     Dosage: 300 MG, BID
     Route: 048
     Dates: start: 2012
  2. TASIGNA [Suspect]
     Active Substance: NILOTINIB
     Dosage: 300 MG, BID
     Route: 048
     Dates: start: 20130705, end: 20140720
  3. TASIGNA [Suspect]
     Active Substance: NILOTINIB
     Dosage: 600 MG, BID
     Route: 048
     Dates: start: 20140326
  4. TASIGNA [Suspect]
     Active Substance: NILOTINIB
     Dosage: 300 MG, BID
     Route: 048
     Dates: start: 20140326
  5. TASIGNA [Suspect]
     Active Substance: NILOTINIB
     Dosage: 300 MG, BID
     Route: 048
     Dates: start: 20151105
  6. TASIGNA [Suspect]
     Active Substance: NILOTINIB
     Dosage: 300 MG, BID
     Route: 048
     Dates: start: 20161022
  7. TASIGNA [Suspect]
     Active Substance: NILOTINIB
     Dosage: 300 MG, BID
     Route: 048
     Dates: start: 20161117
  8. TASIGNA [Suspect]
     Active Substance: NILOTINIB
     Dosage: 300 MG, BID
     Route: 048
     Dates: start: 20211222
  9. TASIGNA [Suspect]
     Active Substance: NILOTINIB
     Dosage: 300 MG, BID
     Route: 048
     Dates: start: 20221221
  10. TASIGNA [Suspect]
     Active Substance: NILOTINIB
     Dosage: 300 MG, BID
     Route: 065
     Dates: start: 20230801
  11. IMATINIB [Concomitant]
     Active Substance: IMATINIB
     Indication: Product used for unknown indication
     Dosage: UNK
     Route: 065

REACTIONS (19)
  - Chronic myeloid leukaemia [Unknown]
  - Malignant neoplasm progression [Unknown]
  - Neck mass [Unknown]
  - Osteonecrosis [Recovering/Resolving]
  - Blood creatinine decreased [Unknown]
  - Gait disturbance [Recovering/Resolving]
  - Platelet count abnormal [Unknown]
  - Diarrhoea [Unknown]
  - Bipolar disorder [Recovered/Resolved]
  - Bipolar disorder [Unknown]
  - Infection [Recovered/Resolved]
  - Rash [Recovered/Resolved]
  - Aggression [Recovered/Resolved]
  - Laboratory test abnormal [Unknown]
  - Pallor [Unknown]
  - Arthralgia [Unknown]
  - White blood cell count decreased [Unknown]
  - Haemoglobin decreased [Unknown]
  - Hypomania [Unknown]

NARRATIVE: CASE EVENT DATE: 20140720
